FAERS Safety Report 26057119 (Version 1)
Quarter: 2025Q4

REPORT INFORMATION
  Report Type: Spontaneous
  Country: IL (occurrence: IL)
  Receive Date: 20251118
  Receipt Date: 20251118
  Transmission Date: 20260117
  Serious: Yes (Disabling)
  Sender: ASTELLAS
  Company Number: IL-ASTELLAS-2025-AER-062035

PATIENT
  Sex: Male

DRUGS (1)
  1. MIRABEGRON [Suspect]
     Active Substance: MIRABEGRON
     Indication: Product used for unknown indication
     Dosage: 50 MG
     Route: 065

REACTIONS (2)
  - Paraphilia [Unknown]
  - Hypersexuality [Unknown]
